FAERS Safety Report 18168333 (Version 1)
Quarter: 2020Q3

REPORT INFORMATION
  Report Type: Spontaneous
  Country: FR (occurrence: FR)
  Receive Date: 20200819
  Receipt Date: 20200819
  Transmission Date: 20201103
  Serious: Yes (Hospitalization)
  Sender: FDA-Public Use
  Company Number: NVSC2020FR222613

PATIENT
  Age: 69 Year
  Sex: Male

DRUGS (1)
  1. PEGFILGRASTIM [Suspect]
     Active Substance: PEGFILGRASTIM
     Indication: PROPHYLAXIS
     Dosage: UNK
     Route: 065
     Dates: start: 202007

REACTIONS (6)
  - Drug ineffective [Unknown]
  - Hypokalaemia [Unknown]
  - Febrile neutropenia [Unknown]
  - Septic shock [Recovering/Resolving]
  - Large intestine infection [Recovering/Resolving]
  - Aplasia [Recovered/Resolved]

NARRATIVE: CASE EVENT DATE: 20200714
